FAERS Safety Report 15603039 (Version 1)
Quarter: 2018Q4

REPORT INFORMATION
  Report Type: Spontaneous
  Country: ZA (occurrence: ZA)
  Receive Date: 20181109
  Receipt Date: 20181109
  Transmission Date: 20190205
  Serious: Yes (Hospitalization, Other)
  Sender: FDA-Public Use
  Company Number: ZA-PFIZER INC-2018457204

PATIENT
  Age: 24 Year
  Sex: Male
  Weight: 62 kg

DRUGS (17)
  1. LINEZOLID. [Suspect]
     Active Substance: LINEZOLID
     Dosage: UNK
     Dates: start: 20180821
  2. BEDAQUILINE [Suspect]
     Active Substance: BEDAQUILINE
     Indication: TUBERCULOSIS
     Dosage: 400 MG, DAILY
     Route: 048
     Dates: start: 20180614, end: 201806
  3. ETHIONAMIDE [Suspect]
     Active Substance: ETHIONAMIDE
     Dosage: UNK
     Dates: start: 20181010
  4. LINEZOLID. [Suspect]
     Active Substance: LINEZOLID
     Indication: TUBERCULOSIS
     Dosage: 600 MG, DAILY
     Route: 048
     Dates: start: 20180614, end: 20180728
  5. DELAMANID [Suspect]
     Active Substance: DELAMANID
     Indication: TUBERCULOSIS
     Dosage: 100 MG, 2X/DAY
     Route: 048
     Dates: start: 20180614, end: 20180728
  6. PYRAZINAMIDE. [Suspect]
     Active Substance: PYRAZINAMIDE
     Indication: TUBERCULOSIS
     Dosage: 1750 MG, 1X/DAY
     Route: 048
     Dates: start: 20180614, end: 20180728
  7. ISONIAZID. [Suspect]
     Active Substance: ISONIAZID
     Dosage: UNK
     Dates: start: 20180614, end: 20180723
  8. PYRIDOXINE [Concomitant]
     Active Substance: PYRIDOXINE
     Indication: NEUROPATHY PERIPHERAL
     Dosage: UNK
     Dates: start: 20180614
  9. TERIZIDONE [Suspect]
     Active Substance: TERIZIDONE
     Dosage: UNK
     Dates: start: 20180614, end: 20180725
  10. LEVOFLOXACIN. [Suspect]
     Active Substance: LEVOFLOXACIN
     Indication: TUBERCULOSIS
     Dosage: 1000 MG, DAILY
     Route: 048
     Dates: start: 20180614, end: 20180728
  11. DELAMANID [Suspect]
     Active Substance: DELAMANID
     Dosage: UNK
     Dates: start: 20180821
  12. CLOFAZIMINE [Suspect]
     Active Substance: CLOFAZIMINE
     Indication: TUBERCULOSIS
     Dosage: 100 MG, DAILY
     Route: 048
     Dates: start: 20180614, end: 20180728
  13. BEDAQUILINE [Suspect]
     Active Substance: BEDAQUILINE
     Dosage: UNK
     Dates: start: 20180821
  14. CLOFAZIMINE [Suspect]
     Active Substance: CLOFAZIMINE
     Dosage: UNK
     Dates: start: 20180828
  15. BEDAQUILINE [Suspect]
     Active Substance: BEDAQUILINE
     Dosage: 200 MG, TIW
     Route: 048
     Dates: start: 201806, end: 20180728
  16. ETHIONAMIDE [Suspect]
     Active Substance: ETHIONAMIDE
     Indication: TUBERCULOSIS
     Dosage: 750 MG, DAILY
     Route: 048
     Dates: start: 20180614, end: 20180728
  17. LEVOFLOXACIN. [Suspect]
     Active Substance: LEVOFLOXACIN
     Dosage: UNK
     Dates: start: 20180903

REACTIONS (8)
  - Drug-induced liver injury [Recovered/Resolved]
  - Movement disorder [Unknown]
  - Gastritis [Unknown]
  - Gamma-glutamyltransferase decreased [Unknown]
  - Rash [Unknown]
  - Hypothyroidism [Unknown]
  - Psychotic disorder [Recovered/Resolved]
  - Gynaecomastia [Unknown]

NARRATIVE: CASE EVENT DATE: 20180621
